FAERS Safety Report 7430850-9 (Version None)
Quarter: 2011Q2

REPORT INFORMATION
  Report Type: 
  Country: None (occurrence: None)
  Receive Date: 20110419
  Receipt Date: 20110419
  Transmission Date: 20111010
  Serious: No
  Sender: FDA-Public Use
  Company Number: None

PATIENT
  Age: 77 Year
  Sex: Male

DRUGS (1)
  1. DIOVAN [Suspect]
     Indication: HYPERTENSION
     Dosage: TAKE 1 TABLET DAILY (PATIENT STATES MD ADVISED TO TAKE 2 DAILY ABOUT 3 WEEKS AGO)

REACTIONS (2)
  - PRODUCT QUALITY ISSUE [None]
  - POLLAKIURIA [None]
